FAERS Safety Report 8052589-1 (Version None)
Quarter: 2012Q1

REPORT INFORMATION
  Report Type: 
  Country: None (occurrence: None)
  Receive Date: 20120117
  Receipt Date: 20120117
  Transmission Date: 20120608
  Serious: Yes (Hospitalization)
  Sender: FDA-Public Use
  Company Number: None

PATIENT
  Age: 61 Year
  Sex: Male
  Weight: 113.7 kg

DRUGS (2)
  1. ETODOLAC [Suspect]
     Dosage: 200 MG BID PO
     Route: 048
     Dates: start: 20110712, end: 20110818
  2. CLOPIDOGREL [Suspect]
     Dosage: 75 G EVERY DAY PO
     Route: 048
     Dates: start: 20100724

REACTIONS (1)
  - GASTRIC HAEMORRHAGE [None]
